FAERS Safety Report 19171695 (Version 1)
Quarter: 2021Q2

REPORT INFORMATION
  Report Type: Spontaneous
  Country: US (occurrence: US)
  Receive Date: 20210422
  Receipt Date: 20210422
  Transmission Date: 20210717
  Serious: Yes (Life-Threatening, Other)
  Sender: FDA-Public Use
  Company Number: None

PATIENT
  Age: 56 Year
  Sex: Male
  Weight: 122.02 kg

DRUGS (2)
  1. LISINOPRIL (LISINOPRIL 30MG TAB) [Suspect]
     Active Substance: LISINOPRIL
     Indication: HYPERTENSION
     Route: 048
     Dates: start: 20201211, end: 20210210
  2. HYDROCHLOROTHIAZIDE(HYDROCLOROTHIAZIDE 25MG TAB) [Suspect]
     Active Substance: HYDROCHLOROTHIAZIDE
     Indication: HYPERTENSION
     Route: 048
     Dates: start: 20201211, end: 20210210

REACTIONS (4)
  - Diarrhoea [None]
  - Nephrolithiasis [None]
  - Dehydration [None]
  - Acute kidney injury [None]

NARRATIVE: CASE EVENT DATE: 20210208
